FAERS Safety Report 4636596-4 (Version None)
Quarter: 2005Q2

REPORT INFORMATION
  Report Type: 
  Country: None (occurrence: None)
  Receive Date: 20050415
  Receipt Date: 20050303
  Transmission Date: 20051028
  Serious: Yes (Disabling)
  Sender: FDA-Public Use
  Company Number: PHNR2005AU00613

PATIENT
  Age: 57 Year
  Sex: Female

DRUGS (1)
  1. ZOMETA [Suspect]
     Indication: METASTASES TO BONE
     Dosage: 4 MG, UNK
     Dates: start: 20020101, end: 20050201

REACTIONS (11)
  - ASEPTIC NECROSIS BONE [None]
  - DISEASE RECURRENCE [None]
  - FALL [None]
  - INJURY [None]
  - JAW DISORDER [None]
  - SINUS DISORDER [None]
  - SWELLING [None]
  - THERAPY NON-RESPONDER [None]
  - TOOTH EXTRACTION [None]
  - TRISMUS [None]
  - ULCER [None]
